FAERS Safety Report 9694573 (Version 2)
Quarter: 2014Q1

REPORT INFORMATION
  Report Type: Spontaneous
  Country: SE (occurrence: SE)
  Receive Date: 20131118
  Receipt Date: 20140220
  Transmission Date: 20141002
  Serious: Yes (Hospitalization)
  Sender: FDA-Public Use
  Company Number: SE-ABBVIE-13P-150-1168593-00

PATIENT
  Age: 44 Year
  Sex: Female

DRUGS (2)
  1. HUMIRA [Suspect]
     Indication: SPONDYLITIS
     Dates: start: 20130307, end: 20130724
  2. METHOTREXATE [Suspect]
     Indication: SPONDYLITIS
     Dates: start: 20100621, end: 20130724

REACTIONS (4)
  - Cough [Recovered/Resolved]
  - Pyrexia [Recovered/Resolved]
  - Alveolitis [Recovered/Resolved]
  - Arthralgia [Recovered/Resolved]
